FAERS Safety Report 4435285-9 (Version None)
Quarter: 2004Q3

REPORT INFORMATION
  Report Type: 
  Country: None (occurrence: None)
  Receive Date: 20040827
  Receipt Date: 20040827
  Transmission Date: 20050211
  Serious: Yes (Life-Threatening, Hospitalization)
  Sender: FDA-Public Use
  Company Number: None

PATIENT
  Sex: Male

DRUGS (5)
  1. IRESSA [Suspect]
     Indication: THYMOMA
     Dosage: 250 MG BID PO
     Route: 048
     Dates: start: 20030524, end: 20040821
  2. MESTINON [Concomitant]
  3. NEXIUM [Concomitant]
  4. ADVAIR INHALER [Concomitant]
  5. IBUPROFEN [Concomitant]

REACTIONS (1)
  - MYOCARDIAL INFARCTION [None]
